FAERS Safety Report 16334345 (Version 2)
Quarter: 2019Q3

REPORT INFORMATION
  Report Type: Report from Study
  Country: US (occurrence: US)
  Receive Date: 20190520
  Receipt Date: 20190822
  Transmission Date: 20191004
  Serious: Yes (Death, Other)
  Sender: FDA-Public Use
  Company Number: US-TAKEDA-2019TUS031339

PATIENT
  Age: 54 Year
  Sex: Female
  Weight: 65 kg

DRUGS (2)
  1. PONATINIB [Suspect]
     Active Substance: PONATINIB
     Indication: BREAST CANCER METASTATIC
     Dosage: 45 MILLIGRAM, QD
     Route: 048
     Dates: start: 20190429
  2. METHOTREXATE. [Concomitant]
     Active Substance: METHOTREXATE
     Indication: METASTASES TO MENINGES
     Dosage: 12 MILLIGRAM
     Route: 065
     Dates: start: 20190404, end: 20190506

REACTIONS (3)
  - Breast cancer metastatic [Fatal]
  - Off label use [Unknown]
  - Abdominal pain [Not Recovered/Not Resolved]

NARRATIVE: CASE EVENT DATE: 20190429
